FAERS Safety Report 23954850 (Version 6)
Quarter: 2024Q3

REPORT INFORMATION
  Report Type: Spontaneous
  Country: CA (occurrence: CA)
  Receive Date: 20240610
  Receipt Date: 20240919
  Transmission Date: 20241016
  Serious: Yes (Other)
  Sender: CELLTRION
  Company Number: CA-PFIZER INC-202400186631

PATIENT

DRUGS (7)
  1. INFLECTRA [Suspect]
     Active Substance: INFLIXIMAB-DYYB
     Indication: Crohn^s disease
     Dosage: 5 MG/KG, W 0,2,6, THEN EVERY 8 WEEKS
     Route: 042
     Dates: start: 20240421
  2. INFLECTRA [Suspect]
     Active Substance: INFLIXIMAB-DYYB
     Dosage: 5 MG/KG, W 0,2,6, THEN EVERY 8 WEEKS
     Route: 042
     Dates: start: 20240506
  3. INFLECTRA [Suspect]
     Active Substance: INFLIXIMAB-DYYB
     Dosage: 510 MG (5 MG/KG), AFTER 4 WEEKS AND 1 DAY (W 0,2,6, THEN EVERY 8 WEEKS)
     Route: 042
     Dates: start: 20240604
  4. INFLECTRA [Suspect]
     Active Substance: INFLIXIMAB-DYYB
     Dosage: 5 MG/KG, EVERY 6 WEEKS
     Route: 042
     Dates: start: 20240712
  5. INFLECTRA [Suspect]
     Active Substance: INFLIXIMAB-DYYB
     Dosage: 5 MG/KG, AFTER 6 WEEKS
     Route: 042
     Dates: start: 20240822
  6. INFLECTRA [Suspect]
     Active Substance: INFLIXIMAB-DYYB
     Dosage: 5 MG/KG, AFTER 6 WEEKS
     Route: 042
     Dates: start: 20240823
  7. INFLECTRA [Suspect]
     Active Substance: INFLIXIMAB-DYYB
     Dosage: 1000MG, 2 WEEKS AND 4 DAYS (10MG/KG, EVERY 4 WEEKS)
     Route: 042
     Dates: start: 20240910

REACTIONS (5)
  - Condition aggravated [Recovering/Resolving]
  - Drug level abnormal [Unknown]
  - Therapeutic response shortened [Unknown]
  - Off label use [Unknown]
  - Inappropriate schedule of product administration [Unknown]

NARRATIVE: CASE EVENT DATE: 20240101
